FAERS Safety Report 5028047-5 (Version None)
Quarter: 2006Q2

REPORT INFORMATION
  Report Type: 
  Country: None (occurrence: None)
  Receive Date: 20060612
  Receipt Date: 20060602
  Transmission Date: 20061013
  Serious: Yes (Other)
  Sender: FDA-Public Use
  Company Number: GBWYE635618MAY06

PATIENT

DRUGS (1)
  1. EFFEXOR [Suspect]
     Indication: DEPRESSION
     Dosage: 75 MG 1X PER 1 MTH
     Dates: start: 20060401

REACTIONS (4)
  - BUNDLE BRANCH BLOCK LEFT [None]
  - BUNDLE BRANCH BLOCK RIGHT [None]
  - QRS AXIS ABNORMAL [None]
  - SUPRAVENTRICULAR EXTRASYSTOLES [None]
